FAERS Safety Report 9822934 (Version 1)
Quarter: 2014Q1

REPORT INFORMATION
  Report Type: Spontaneous
  Country: US (occurrence: US)
  Receive Date: 20140116
  Receipt Date: 20140116
  Transmission Date: 20141002
  Serious: Yes (Other)
  Sender: FDA-Public Use
  Company Number: US-FRI-1000052830

PATIENT
  Age: 61 Year
  Sex: Female

DRUGS (3)
  1. ARMOUR THYROID [Suspect]
     Indication: THYROIDECTOMY
     Dosage: 45MG MON. WED. FRI.; 60MG TUE. THURS. SAT. SUN.
     Dates: start: 201305, end: 201312
  2. ARMOUR THYROID [Suspect]
     Dosage: 45MG ON MON; 60MG TUES-SUN
     Dates: start: 201312
  3. LOVASTATIN [Concomitant]
     Indication: BLOOD CHOLESTEROL INCREASED
     Dosage: 20 MG

REACTIONS (2)
  - Upper respiratory tract infection [Recovered/Resolved]
  - Blood thyroid stimulating hormone increased [Unknown]
